FAERS Safety Report 7168090-3 (Version None)
Quarter: 2010Q4

REPORT INFORMATION
  Report Type: 
  Country: None (occurrence: None)
  Receive Date: 20101216
  Receipt Date: 20101203
  Transmission Date: 20110411
  Serious: No
  Sender: FDA-Public Use
  Company Number: US-PFIZER INC-2010166243

PATIENT
  Age: 1 Year
  Sex: Female
  Weight: 11.791 kg

DRUGS (1)
  1. CHILDREN'S ADVIL [Suspect]
     Dosage: 1 TSP EVERY 8 HRS
     Route: 048
     Dates: start: 20101110, end: 20101113

REACTIONS (1)
  - URTICARIA [None]
